FAERS Safety Report 6786371-X (Version None)
Quarter: 2010Q2

REPORT INFORMATION
  Report Type: 
  Country: None (occurrence: None)
  Receive Date: 20100623
  Receipt Date: 20100610
  Transmission Date: 20101027
  Serious: Yes (Other)
  Sender: FDA-Public Use
  Company Number: PHHY2010BR38001

PATIENT
  Age: 50 Year
  Sex: Male
  Weight: 96 kg

DRUGS (1)
  1. DIOVAN HCT [Suspect]
     Indication: HYPERTENSION
     Dosage: 1 TABLET (320/12.5 MG) DAILY
     Route: 048

REACTIONS (3)
  - DRUG TOXICITY [None]
  - ERECTILE DYSFUNCTION [None]
  - RASH ERYTHEMATOUS [None]
